FAERS Safety Report 19465201 (Version 1)
Quarter: 2021Q2

REPORT INFORMATION
  Report Type: Spontaneous
  Country: US (occurrence: US)
  Receive Date: 20210624
  Receipt Date: 20210624
  Transmission Date: 20210717
  Serious: Yes (Hospitalization, Other)
  Sender: FDA-Public Use
  Company Number: US-BRACCO-2021US00734

PATIENT
  Age: 56 Year
  Sex: Female

DRUGS (2)
  1. MULTIHANCE [Suspect]
     Active Substance: GADOBENATE DIMEGLUMINE
     Indication: MAGNETIC RESONANCE IMAGING HEAD
     Dosage: 20 ML, SINGLE
     Route: 042
     Dates: start: 20210223, end: 20210223
  2. KLONOPIN [Concomitant]
     Active Substance: CLONAZEPAM
     Indication: CLAUSTROPHOBIA
     Dosage: UNK
     Dates: start: 20210223

REACTIONS (1)
  - Anaphylactic reaction [Unknown]

NARRATIVE: CASE EVENT DATE: 20210223
